FAERS Safety Report 8512784-1 (Version None)
Quarter: 2012Q3

REPORT INFORMATION
  Report Type: 
  Country: None (occurrence: None)
  Receive Date: 20120716
  Receipt Date: 20120705
  Transmission Date: 20120928
  Serious: No
  Sender: FDA-Public Use
  Company Number: US-009507513-1207USA002409

PATIENT

DRUGS (8)
  1. RIBAVIRIN [Suspect]
     Dosage: UNK UNK, QD
  2. PREMARIN [Concomitant]
     Dosage: 0.3 MG, UNK
  3. AMLODIPINE [Concomitant]
     Dosage: 2.5 MG, UNK
  4. LYRICA [Concomitant]
     Dosage: 100 MG, UNK
  5. TELAPREVIR [Suspect]
     Dosage: 375 MG, UNK
  6. CALCIUM (UNSPECIFIED) [Concomitant]
     Dosage: 500 UNK, UNK
  7. CYANOCOBALAMIN [Concomitant]
  8. PEG-INTRON [Suspect]
     Dosage: 120 MCG/0.5 ML

REACTIONS (1)
  - ANAEMIA [None]
